FAERS Safety Report 9167410 (Version 2)
Quarter: 2013Q2

REPORT INFORMATION
  Report Type: Spontaneous
  Country: JP (occurrence: JP)
  Receive Date: 20130318
  Receipt Date: 20130410
  Transmission Date: 20140414
  Serious: Yes (Hospitalization)
  Sender: FDA-Public Use
  Company Number: JP-JNJFOC-20130306574

PATIENT
  Age: 93 Year
  Sex: Male
  Weight: 62 kg

DRUGS (18)
  1. XARELTO [Suspect]
     Indication: ATRIAL FIBRILLATION
     Route: 048
     Dates: start: 20130220
  2. XARELTO [Suspect]
     Indication: CEREBROVASCULAR ACCIDENT PROPHYLAXIS
     Route: 048
     Dates: start: 20130220
  3. BAYASPIRIN [Interacting]
     Indication: PRODUCT USED FOR UNKNOWN INDICATION
     Route: 048
  4. VOLTAREN [Interacting]
     Indication: PRODUCT USED FOR UNKNOWN INDICATION
     Route: 054
     Dates: start: 20130212
  5. CELECOXIB [Interacting]
     Indication: PRODUCT USED FOR UNKNOWN INDICATION
     Route: 048
  6. NORVASC [Concomitant]
     Route: 048
  7. BLOPRESS [Concomitant]
     Route: 048
  8. AMARYL [Concomitant]
     Route: 048
  9. JANUVIA [Concomitant]
     Route: 048
  10. VITAMIN D AND ANALOGUES [Concomitant]
     Route: 048
  11. MYSLEE [Concomitant]
     Route: 048
  12. POLYFUL [Concomitant]
     Route: 048
  13. GANATON [Concomitant]
     Route: 048
  14. CLOSTRIDIUM BUTYRICUM [Concomitant]
     Route: 048
  15. MAGNESIUM OXIDE [Concomitant]
     Route: 048
  16. DAIOKANZOTO [Concomitant]
     Route: 048
  17. MUCOSTA [Concomitant]
     Route: 048
  18. MINODRONIC ACID [Concomitant]
     Route: 048

REACTIONS (2)
  - Gastrointestinal haemorrhage [Unknown]
  - Drug interaction [Unknown]
